FAERS Safety Report 8432335-X (Version None)
Quarter: 2012Q2

REPORT INFORMATION
  Report Type: 
  Country: None (occurrence: None)
  Receive Date: 20120607
  Receipt Date: 20120222
  Transmission Date: 20120825
  Serious: Yes (Other)
  Sender: FDA-Public Use
  Company Number: 2010JP000200

PATIENT
  Age: 25 Year
  Sex: Female
  Weight: 40 kg

DRUGS (19)
  1. TACROLIMUS [Suspect]
     Indication: LUPUS NEPHRITIS
     Dosage: 3 MG, D, ORAL 2 MG, D, ORAL
     Route: 048
     Dates: start: 20110727
  2. TACROLIMUS [Suspect]
     Indication: LUPUS NEPHRITIS
     Dosage: 3 MG, D, ORAL 2 MG, D, ORAL
     Route: 048
     Dates: start: 20081210, end: 20110726
  3. SIMVASTATIN [Concomitant]
  4. METHYLPREDNISOLONE [Concomitant]
  5. FERROMIA (FERROUS SODIUM CITRATE) [Concomitant]
  6. PREDNISOLONE [Suspect]
     Indication: LUPUS NEPHRITIS
     Dosage: 20 MG, D, ORAL 15 MG, D , ORAL 12.5 MG, D, ORAL
     Route: 048
     Dates: start: 20091007, end: 20091130
  7. PREDNISOLONE [Suspect]
     Indication: LUPUS NEPHRITIS
     Dosage: 20 MG, D, ORAL 15 MG, D , ORAL 12.5 MG, D, ORAL
     Route: 048
     Dates: start: 20091204, end: 20100210
  8. PREDNISOLONE [Suspect]
     Indication: LUPUS NEPHRITIS
     Dosage: 20 MG, D, ORAL 15 MG, D , ORAL 12.5 MG, D, ORAL
     Route: 048
     Dates: start: 20100815, end: 20100915
  9. PREDNISOLONE [Suspect]
     Indication: LUPUS NEPHRITIS
     Dosage: 20 MG, D, ORAL 15 MG, D , ORAL 12.5 MG, D, ORAL
     Route: 048
     Dates: start: 20101014, end: 20101215
  10. PREDNISOLONE [Suspect]
     Indication: LUPUS NEPHRITIS
     Dosage: 20 MG, D, ORAL 15 MG, D , ORAL 12.5 MG, D, ORAL
     Route: 048
     Dates: end: 20090128
  11. PREDNISOLONE [Suspect]
     Indication: LUPUS NEPHRITIS
     Dosage: 20 MG, D, ORAL 15 MG, D , ORAL 12.5 MG, D, ORAL
     Route: 048
     Dates: start: 20090326, end: 20090729
  12. PREDNISOLONE [Suspect]
     Indication: LUPUS NEPHRITIS
     Dosage: 20 MG, D, ORAL 15 MG, D , ORAL 12.5 MG, D, ORAL
     Route: 048
     Dates: start: 20090129, end: 20090325
  13. PREDNISOLONE [Suspect]
     Indication: LUPUS NEPHRITIS
     Dosage: 20 MG, D, ORAL 15 MG, D , ORAL 12.5 MG, D, ORAL
     Route: 048
     Dates: start: 20101216, end: 20110202
  14. PREDNISOLONE [Suspect]
     Indication: LUPUS NEPHRITIS
     Dosage: 20 MG, D, ORAL 15 MG, D , ORAL 12.5 MG, D, ORAL
     Route: 048
     Dates: start: 20110203
  15. PREDNISOLONE [Suspect]
     Indication: LUPUS NEPHRITIS
     Dosage: 20 MG, D, ORAL 15 MG, D , ORAL 12.5 MG, D, ORAL
     Route: 048
     Dates: start: 20090730, end: 20091006
  16. PREDNISOLONE [Suspect]
     Indication: LUPUS NEPHRITIS
     Dosage: 20 MG, D, ORAL 15 MG, D , ORAL 12.5 MG, D, ORAL
     Route: 048
     Dates: start: 20100211, end: 20100811
  17. PREDNISOLONE [Suspect]
     Indication: LUPUS NEPHRITIS
     Dosage: 20 MG, D, ORAL 15 MG, D , ORAL 12.5 MG, D, ORAL
     Route: 048
     Dates: start: 20100916, end: 20101013
  18. ALFAROL (ALFACALCIDOL) [Concomitant]
  19. LOSARTAN POTASSIUM [Concomitant]

REACTIONS (6)
  - LIVER DISORDER [None]
  - HYPERLIPIDAEMIA [None]
  - GAMMA-GLUTAMYLTRANSFERASE INCREASED [None]
  - LUPUS NEPHRITIS [None]
  - ABORTION INDUCED [None]
  - MATERNAL EXPOSURE DURING PREGNANCY [None]
